FAERS Safety Report 23084976 (Version 1)
Quarter: 2023Q4

REPORT INFORMATION
  Report Type: Spontaneous
  Country: US (occurrence: US)
  Receive Date: 20231019
  Receipt Date: 20231019
  Transmission Date: 20240110
  Serious: No
  Sender: FDA-Public Use
  Company Number: US-BIOGEN-2020BI00893312

PATIENT
  Age: 78 Year
  Sex: Female

DRUGS (20)
  1. TECFIDERA [Suspect]
     Active Substance: DIMETHYL FUMARATE
     Indication: Multiple sclerosis
     Dosage: TAKING 120MG ONCE DAILY THIS WEEK PLANS TO INCREASE TO 120 MG TWICE DAILY AFTER 7 DAYS
     Route: 050
     Dates: start: 20200624
  2. TECFIDERA [Suspect]
     Active Substance: DIMETHYL FUMARATE
     Dosage: WEEK 2 - 120MG IN MORNING AND 120MG IN EVENING
     Route: 050
     Dates: start: 20200624
  3. TECFIDERA [Suspect]
     Active Substance: DIMETHYL FUMARATE
     Dosage: WEEK 3 - 120MG IN THE MORNING AND 240MG IN THE EVENING
     Route: 050
  4. TECFIDERA [Suspect]
     Active Substance: DIMETHYL FUMARATE
     Dosage: WEEK 4- 240MG IN THE MORNING AND 240MG IN THE EVENING
     Route: 050
  5. TECFIDERA [Suspect]
     Active Substance: DIMETHYL FUMARATE
     Route: 050
  6. TECFIDERA [Suspect]
     Active Substance: DIMETHYL FUMARATE
     Route: 050
     Dates: start: 20200625
  7. TECFIDERA [Suspect]
     Active Substance: DIMETHYL FUMARATE
     Dosage: STARTING DOSE
     Route: 050
     Dates: start: 20200625
  8. TECFIDERA [Suspect]
     Active Substance: DIMETHYL FUMARATE
     Dosage: MAINTENANCE DOSE
     Route: 050
  9. TECFIDERA [Suspect]
     Active Substance: DIMETHYL FUMARATE
     Route: 050
     Dates: start: 202005
  10. TECFIDERA [Suspect]
     Active Substance: DIMETHYL FUMARATE
     Route: 050
     Dates: start: 202006, end: 202006
  11. TYSABRI [Suspect]
     Active Substance: NATALIZUMAB
     Indication: Multiple sclerosis
     Route: 050
  12. ATORVASTATIN [Concomitant]
     Active Substance: ATORVASTATIN
     Indication: Cardiac disorder
     Route: 050
  13. ASPIRIN [Concomitant]
     Active Substance: ASPIRIN
     Route: 050
  14. CARVEDILOL [Concomitant]
     Active Substance: CARVEDILOL
     Route: 050
  15. CLOPIDOGREL BISULFATE [Concomitant]
     Active Substance: CLOPIDOGREL BISULFATE
     Route: 050
  16. GABAPENTIN [Concomitant]
     Active Substance: GABAPENTIN
     Route: 050
  17. KERR INSTA CHAR [Concomitant]
     Route: 050
  18. LISINOPRIL [Concomitant]
     Active Substance: LISINOPRIL
     Route: 050
  19. NITROSTAT [Concomitant]
     Active Substance: NITROGLYCERIN
     Route: 050
  20. PLAVIX [Concomitant]
     Active Substance: CLOPIDOGREL BISULFATE
     Route: 050

REACTIONS (9)
  - Balance disorder [Not Recovered/Not Resolved]
  - Memory impairment [Not Recovered/Not Resolved]
  - Multiple sclerosis [Unknown]
  - Constipation [Unknown]
  - Infrequent bowel movements [Unknown]
  - Gastrointestinal disorder [Recovered/Resolved]
  - Hot flush [Not Recovered/Not Resolved]
  - Diarrhoea [Not Recovered/Not Resolved]
  - Pruritus [Unknown]

NARRATIVE: CASE EVENT DATE: 20200601
